FAERS Safety Report 25895236 (Version 1)
Quarter: 2025Q4

REPORT INFORMATION
  Report Type: Report from Study
  Country: US (occurrence: US)
  Receive Date: 20251008
  Receipt Date: 20251008
  Transmission Date: 20260117
  Serious: Yes (Hospitalization, Other)
  Sender: ABBVIE
  Company Number: US-ABBVIE-6463267

PATIENT
  Age: 25 Year
  Sex: Male
  Weight: 76.657 kg

DRUGS (2)
  1. RINVOQ [Suspect]
     Active Substance: UPADACITINIB
     Indication: Colitis ulcerative
     Dosage: 45 MILLIGRAM
     Route: 048
     Dates: start: 20250913
  2. RINVOQ [Suspect]
     Active Substance: UPADACITINIB
     Indication: Colitis ulcerative
     Dosage: 45 MILLIGRAM
     Route: 048
     Dates: start: 20250402, end: 20250802

REACTIONS (9)
  - Craniocerebral injury [Recovering/Resolving]
  - Road traffic accident [Recovered/Resolved]
  - Brain injury [Recovering/Resolving]
  - Brain operation [Recovered/Resolved]
  - Fractured sacrum [Recovered/Resolved]
  - Memory impairment [Recovering/Resolving]
  - Craniofacial fracture [Recovered/Resolved]
  - Skull fracture [Recovered/Resolved]
  - Pelvic fracture [Recovered/Resolved]

NARRATIVE: CASE EVENT DATE: 20250802
